FAERS Safety Report 17537821 (Version 1)
Quarter: 2020Q1

REPORT INFORMATION
  Report Type: Spontaneous
  Country: US (occurrence: US)
  Receive Date: 20200312
  Receipt Date: 20200312
  Transmission Date: 20200409
  Serious: Yes (Hospitalization, Disabling, Other)
  Sender: FDA-Public Use
  Company Number: None

PATIENT
  Age: 57 Year
  Sex: Male

DRUGS (2)
  1. TPN [Suspect]
     Active Substance: AMINO ACIDS\DEXTROSE\ELECTROLYTES NOS\SOYBEAN OIL
     Indication: POST PROCEDURAL COMPLICATION
     Dosage: ?          QUANTITY:2300 INFUSIONS DAILY;?
     Route: 042
     Dates: start: 20180610, end: 20200123
  2. TPN [Suspect]
     Active Substance: AMINO ACIDS\DEXTROSE\ELECTROLYTES NOS\SOYBEAN OIL
     Indication: SHORT-BOWEL SYNDROME
     Dosage: ?          QUANTITY:2300 INFUSIONS DAILY;?
     Route: 042
     Dates: start: 20180610, end: 20200123

REACTIONS (6)
  - Weight decreased [None]
  - Victim of crime [None]
  - Product formulation issue [None]
  - Product dispensing issue [None]
  - Poor quality product administered [None]
  - Toxicity to various agents [None]

NARRATIVE: CASE EVENT DATE: 20200123
